FAERS Safety Report 18863040 (Version 2)
Quarter: 2021Q1

REPORT INFORMATION
  Report Type: Spontaneous
  Country: US (occurrence: US)
  Receive Date: 20210208
  Receipt Date: 20210303
  Transmission Date: 20210420
  Serious: No
  Sender: FDA-Public Use
  Company Number: US-LUPIN PHARMACEUTICALS INC.-2021-01149

PATIENT
  Sex: Female

DRUGS (1)
  1. ALBUTEROL SULFATE INHALATION AEROSOL, 90 MCG/ACTUATION [Suspect]
     Active Substance: ALBUTEROL SULFATE
     Indication: BRONCHOSPASM
     Dosage: UNK (4 TIMES PER WEEK)
     Dates: start: 20201224

REACTIONS (5)
  - Device ineffective [Unknown]
  - Product substitution issue [Unknown]
  - Device delivery system issue [Unknown]
  - Device information output issue [Unknown]
  - Wrong technique in product usage process [Unknown]
